FAERS Safety Report 5397055-7 (Version None)
Quarter: 2007Q3

REPORT INFORMATION
  Report Type: 
  Country: None (occurrence: None)
  Receive Date: 20070723
  Receipt Date: 20070718
  Transmission Date: 20080115
  Serious: Yes (Other)
  Sender: FDA-Public Use
  Company Number: 2007SP012334

PATIENT
  Sex: Female

DRUGS (1)
  1. CLARITIN [Suspect]
     Indication: DRUG USE FOR UNKNOWN INDICATION
     Dosage: 1 DF; ; PO
     Route: 048

REACTIONS (4)
  - EYE OEDEMA [None]
  - FACE OEDEMA [None]
  - HEADACHE [None]
  - PHARYNGEAL OEDEMA [None]
